FAERS Safety Report 13483634 (Version 1)
Quarter: 2017Q2

REPORT INFORMATION
  Report Type: Spontaneous
  Country: JP (occurrence: JP)
  Receive Date: 20170426
  Receipt Date: 20170426
  Transmission Date: 20170830
  Serious: Yes (Other)
  Sender: FDA-Public Use
  Company Number: JP-BRISTOL-MYERS SQUIBB COMPANY-BMS-2017-034134

PATIENT
  Age: 73 Year
  Sex: Female

DRUGS (1)
  1. HYDREA [Suspect]
     Active Substance: HYDROXYUREA
     Indication: MYELOPROLIFERATIVE NEOPLASM
     Route: 048

REACTIONS (1)
  - Lung disorder [Unknown]
